FAERS Safety Report 9263407 (Version 1)
Quarter: 2013Q2

REPORT INFORMATION
  Report Type: Spontaneous
  Country: US (occurrence: None)
  Receive Date: 20130429
  Receipt Date: 20130429
  Transmission Date: 20140414
  Serious: No
  Sender: FDA-Public Use
  Company Number: None

PATIENT
  Age: 83 Year
  Sex: Female
  Weight: 70.76 kg

DRUGS (1)
  1. TRAZADONE/DESYREL [Suspect]
     Indication: INSOMNIA
     Dosage: 1 PER DAY BEDTIME?APR 15 PM -?ONCE WAS ENOUGH!!

REACTIONS (1)
  - Nightmare [None]
